FAERS Safety Report 22092623 (Version 1)
Quarter: 2023Q1

REPORT INFORMATION
  Report Type: Spontaneous
  Country: FR (occurrence: FR)
  Receive Date: 20230314
  Receipt Date: 20230314
  Transmission Date: 20230417
  Serious: Yes (Other)
  Sender: FDA-Public Use
  Company Number: FR-GRUNENTHAL-2023-101763

PATIENT
  Age: 78 Year
  Sex: Female

DRUGS (1)
  1. QUTENZA [Suspect]
     Active Substance: CAPSAICIN
     Indication: Neuralgia
     Dosage: 1 DOSAGE FORM
     Route: 065
     Dates: start: 20230131, end: 20230131

REACTIONS (2)
  - Breast inflammation [Not Recovered/Not Resolved]
  - Breast induration [Not Recovered/Not Resolved]

NARRATIVE: CASE EVENT DATE: 20230131
